FAERS Safety Report 6314763-1 (Version None)
Quarter: 2009Q3

REPORT INFORMATION
  Report Type: 
  Country: None (occurrence: None)
  Receive Date: 20090819
  Receipt Date: 20090814
  Transmission Date: 20100115
  Serious: Yes (Other)
  Sender: FDA-Public Use
  Company Number: CN-ASTRAZENECA-2009SE08068

PATIENT
  Age: 32 Year
  Sex: Female
  Weight: 53 kg

DRUGS (4)
  1. PROPOFOL [Suspect]
     Indication: ANAESTHESIA
     Route: 042
  2. FENTANYL [Concomitant]
     Route: 042
  3. KETAMINE HCL [Concomitant]
     Route: 042
  4. PIPECURONIUM [Concomitant]
     Route: 042

REACTIONS (1)
  - ASTHMA [None]
